FAERS Safety Report 9369795 (Version 3)
Quarter: 2015Q2

REPORT INFORMATION
  Report Type: Report from Study
  Country: US (occurrence: US)
  Receive Date: 20130626
  Receipt Date: 20150612
  Transmission Date: 20150821
  Serious: Yes (Death, Life-Threatening, Hospitalization, Other)
  Sender: FDA-Public Use
  Company Number: US-ASTELLAS-2013EU001055

PATIENT
  Age: 50 Year
  Sex: Male

DRUGS (93)
  1. VALTREX [Concomitant]
     Active Substance: VALACYCLOVIR HYDROCHLORIDE
     Indication: ANTIVIRAL PROPHYLAXIS
     Route: 048
     Dates: start: 20121130, end: 20121212
  2. VALTREX [Concomitant]
     Active Substance: VALACYCLOVIR HYDROCHLORIDE
     Route: 048
     Dates: start: 20121213, end: 20130104
  3. CIDOFOVIR. [Concomitant]
     Active Substance: CIDOFOVIR
     Indication: SEPSIS
     Route: 042
     Dates: start: 20130124, end: 20130124
  4. DAPTOMYCIN. [Concomitant]
     Active Substance: DAPTOMYCIN
     Indication: SEPSIS
     Route: 042
     Dates: start: 20130112, end: 20130113
  5. DIPHENHYDRAMINE [Concomitant]
     Active Substance: DIPHENHYDRAMINE
     Indication: PRURITUS
     Dosage: 25-50 MG, PRN
     Route: 042
     Dates: start: 20130112, end: 20130118
  6. DIPHENHYDRAMINE [Concomitant]
     Active Substance: DIPHENHYDRAMINE
     Dosage: 50 MG, SINGLE
     Route: 048
     Dates: start: 20130115, end: 20130115
  7. EUCERIN [Concomitant]
     Active Substance: ENSULIZOLE\EUCERIN\OCTINOXATE\OCTISALATE\TITANIUM DIOXIDE\ZINC OXIDE
     Indication: ECZEMA
     Dosage: 1 APPLICATION, PRN
     Route: 061
     Dates: start: 20130105, end: 20130109
  8. EUCERIN [Concomitant]
     Active Substance: ENSULIZOLE\EUCERIN\OCTINOXATE\OCTISALATE\TITANIUM DIOXIDE\ZINC OXIDE
     Dosage: 1 APPLICATION, PRN
     Route: 061
     Dates: start: 20130112, end: 20130127
  9. LIDOCAINE. [Concomitant]
     Active Substance: LIDOCAINE
     Indication: PRODUCT USED FOR UNKNOWN INDICATION
     Dosage: 5 ML, SINGLE
     Route: 042
     Dates: start: 20130119, end: 20130119
  10. PHYTONADIONE. [Concomitant]
     Active Substance: PHYTONADIONE
     Indication: SUPPLEMENTATION THERAPY
     Route: 001
     Dates: start: 20130118, end: 20130127
  11. PROGRAF [Suspect]
     Active Substance: TACROLIMUS\TACROLIMUS ANHYDROUS
     Route: 048
     Dates: start: 20130107, end: 20130109
  12. DAPTOMYCIN. [Concomitant]
     Active Substance: DAPTOMYCIN
     Route: 042
     Dates: start: 20130121, end: 20130127
  13. DAPTOMYCIN. [Concomitant]
     Active Substance: DAPTOMYCIN
     Route: 042
     Dates: start: 20130114, end: 20130120
  14. FENTANYL. [Concomitant]
     Active Substance: FENTANYL
     Dosage: 1000 MCG, PRN
     Route: 042
     Dates: start: 20130126, end: 20130127
  15. NEUPOGEN [Concomitant]
     Active Substance: FILGRASTIM
     Dosage: 480 MCG, QD
     Route: 058
     Dates: start: 20121126, end: 20121211
  16. GANCICLOVIR. [Concomitant]
     Active Substance: GANCICLOVIR
     Indication: PROPHYLAXIS
     Dosage: 100 MG, SINGLE
     Route: 042
     Dates: start: 20130123, end: 20130124
  17. HYDROMORPHONE [Concomitant]
     Active Substance: HYDROMORPHONE
     Indication: PAIN
     Dosage: 0.2-1 MG, PRN
     Route: 042
     Dates: start: 20130112, end: 20130125
  18. IMMUNE GLOBULIN [Concomitant]
     Active Substance: HUMAN IMMUNOGLOBULIN G
     Indication: NEUTROPENIA
     Dosage: 25 G, SINGLE
     Route: 042
     Dates: start: 20130115, end: 20130115
  19. MORPHINE [Concomitant]
     Active Substance: MORPHINE
     Indication: PAIN
     Route: 042
     Dates: start: 20130117, end: 20130117
  20. ROCURONIUM [Concomitant]
     Active Substance: ROCURONIUM BROMIDE
     Dosage: 40 MCG, SINGLE
     Route: 042
     Dates: start: 20130126, end: 20130126
  21. TOBRAMYCIN. [Concomitant]
     Active Substance: TOBRAMYCIN
     Indication: SEPSIS
     Dosage: 480 MCG, SINGLE
     Route: 042
     Dates: start: 20130117, end: 20130117
  22. PROGRAF [Suspect]
     Active Substance: TACROLIMUS\TACROLIMUS ANHYDROUS
     Indication: PROPHYLAXIS AGAINST TRANSPLANT REJECTION
     Route: 042
     Dates: start: 20121124, end: 20121128
  23. PROGRAF [Suspect]
     Active Substance: TACROLIMUS\TACROLIMUS ANHYDROUS
     Route: 048
     Dates: start: 20121209, end: 20121212
  24. ATIVAN [Concomitant]
     Active Substance: LORAZEPAM
     Indication: ANXIETY
     Dosage: 0.5 MG, AS NEEDED
     Route: 048
     Dates: start: 20121019, end: 20130114
  25. FLAGYL [Concomitant]
     Active Substance: METRONIDAZOLE\METRONIDAZOLE HYDROCHLORIDE
     Indication: FEBRILE NEUTROPENIA
     Route: 048
     Dates: start: 20130107, end: 20130109
  26. VALTREX [Concomitant]
     Active Substance: VALACYCLOVIR HYDROCHLORIDE
     Route: 048
     Dates: start: 20130112, end: 20130116
  27. IMODIUM [Concomitant]
     Active Substance: LOPERAMIDE HYDROCHLORIDE
     Route: 048
     Dates: start: 20130124, end: 20130127
  28. ZOSYN [Concomitant]
     Active Substance: PIPERACILLIN SODIUM\TAZOBACTAM SODIUM
     Indication: SEPSIS
     Route: 042
     Dates: start: 20130114, end: 20130124
  29. K-DUR [Concomitant]
     Active Substance: POTASSIUM CHLORIDE
     Indication: HYPOKALAEMIA
     Dosage: UNK, AS NEEDED
     Route: 048
     Dates: start: 20121102, end: 20121213
  30. BICITRA [Concomitant]
     Active Substance: CITRIC ACID, 1-STEARYL ESTER\SODIUM CITRATE
     Indication: SEPSIS
     Dosage: 15-30 ML, BID
     Route: 048
     Dates: start: 20130120, end: 20130127
  31. TACROLIMUS. [Concomitant]
     Active Substance: TACROLIMUS
     Indication: STEM CELL TRANSPLANT
     Dosage: 0.5 MG, TWICE DAILY
     Route: 048
     Dates: start: 20130118, end: 20130120
  32. TACROLIMUS. [Concomitant]
     Active Substance: TACROLIMUS
     Dosage: 0.5 MG, TWICE DAILY
     Route: 042
     Dates: start: 20130123, end: 20130124
  33. VORICONAZOLE. [Concomitant]
     Active Substance: VORICONAZOLE
     Indication: ANTIFUNGAL PROPHYLAXIS
     Route: 048
     Dates: start: 20121119, end: 20130103
  34. ATOVAQUONE. [Concomitant]
     Active Substance: ATOVAQUONE
     Indication: ANTIBIOTIC PROPHYLAXIS
     Route: 048
     Dates: start: 20130124, end: 20130127
  35. ACETAMINOPHEN. [Concomitant]
     Active Substance: ACETAMINOPHEN
     Indication: PYREXIA
     Route: 048
     Dates: start: 20130112, end: 20130124
  36. FIDAXOMICIN [Suspect]
     Active Substance: FIDAXOMICIN
     Indication: PROPHYLAXIS
     Route: 048
     Dates: start: 20121120, end: 20121224
  37. FLAGYL [Concomitant]
     Active Substance: METRONIDAZOLE\METRONIDAZOLE HYDROCHLORIDE
     Indication: CHOLECYSTITIS ACUTE
     Route: 042
     Dates: start: 20130103, end: 20130107
  38. FLAGYL [Concomitant]
     Active Substance: METRONIDAZOLE\METRONIDAZOLE HYDROCHLORIDE
     Route: 042
     Dates: start: 20121031, end: 20121105
  39. CEFEPIME [Concomitant]
     Active Substance: CEFEPIME\CEFEPIME HYDROCHLORIDE
     Route: 042
     Dates: start: 20130112, end: 20130114
  40. LASIX [Concomitant]
     Active Substance: FUROSEMIDE
     Indication: OEDEMA
     Dosage: 80-200 MG, PRN
     Route: 042
     Dates: start: 20130120, end: 20130121
  41. GANCICLOVIR. [Concomitant]
     Active Substance: GANCICLOVIR
     Indication: SEPSIS
     Route: 042
     Dates: start: 20121119, end: 20121124
  42. TRANDATE [Concomitant]
     Active Substance: LABETALOL HYDROCHLORIDE
     Indication: PRODUCT USED FOR UNKNOWN INDICATION
     Route: 042
     Dates: start: 20130119, end: 20130119
  43. MAG-OX [Concomitant]
     Active Substance: MAGNESIUM OXIDE
     Indication: BLOOD MAGNESIUM DECREASED
     Dosage: 400 MG, SINGLE
     Route: 048
     Dates: start: 20130116, end: 20130116
  44. MAGNESIUM SULFATE. [Concomitant]
     Active Substance: MAGNESIUM SULFATE
     Route: 048
     Dates: start: 20130112, end: 20130123
  45. MICAFUNGIN [Concomitant]
     Active Substance: MICAFUNGIN
     Route: 042
     Dates: start: 20130123, end: 20130127
  46. MORPHINE [Concomitant]
     Active Substance: MORPHINE
     Indication: CHOLECYSTITIS ACUTE
     Dosage: 2-4 MG, PRN
     Route: 042
     Dates: start: 20130103, end: 20130105
  47. K-DUR [Concomitant]
     Active Substance: POTASSIUM CHLORIDE
     Indication: BLOOD POTASSIUM DECREASED
     Dosage: 40 MEQ, SINGLE
     Route: 048
     Dates: start: 20130108, end: 20130108
  48. TRIAMCINOLONE [Concomitant]
     Active Substance: TRIAMCINOLONE
     Indication: ECZEMA
     Dosage: 1 APPLICATION, BID
     Route: 061
     Dates: start: 20130105, end: 20130109
  49. PROGRAF [Suspect]
     Active Substance: TACROLIMUS\TACROLIMUS ANHYDROUS
     Route: 042
     Dates: start: 20121129, end: 20121208
  50. POTASSIUM CHLORIDE. [Concomitant]
     Active Substance: POTASSIUM CHLORIDE
     Route: 042
     Dates: start: 20130112, end: 20130124
  51. NEXIUM [Concomitant]
     Active Substance: ESOMEPRAZOLE MAGNESIUM
     Indication: PROPHYLAXIS AGAINST GASTROINTESTINAL ULCER
     Route: 048
     Dates: start: 20121031, end: 20130125
  52. FLAGYL [Concomitant]
     Active Substance: METRONIDAZOLE\METRONIDAZOLE HYDROCHLORIDE
     Route: 042
     Dates: start: 20130111, end: 20130114
  53. NEUPOGEN [Concomitant]
     Active Substance: FILGRASTIM
     Dosage: 300 MCG, QD
     Route: 058
     Dates: start: 20130115, end: 20130127
  54. MAGNESIUM SULFATE. [Concomitant]
     Active Substance: MAGNESIUM SULFATE
     Indication: BLOOD MAGNESIUM DECREASED
     Route: 048
     Dates: start: 20130104, end: 20130109
  55. MIDAZOLAM [Concomitant]
     Active Substance: MIDAZOLAM\MIDAZOLAM HYDROCHLORIDE
     Indication: PRODUCT USED FOR UNKNOWN INDICATION
     Route: 042
     Dates: start: 20130117, end: 20130119
  56. K-DUR [Concomitant]
     Active Substance: POTASSIUM CHLORIDE
     Dosage: 40 MEQ, QD
     Route: 048
     Dates: start: 20130117, end: 20130117
  57. PROPOFOL. [Concomitant]
     Active Substance: PROPOFOL
     Indication: PRODUCT USED FOR UNKNOWN INDICATION
     Dosage: 10-50 MCG, PRN
     Route: 042
     Dates: start: 20130119, end: 20130119
  58. TRIAMCINOLONE [Concomitant]
     Active Substance: TRIAMCINOLONE
     Dosage: 1 APPLICATION, TID
     Route: 061
     Dates: start: 20130112, end: 20130127
  59. ZANAMIVIR [Concomitant]
     Active Substance: ZANAMIVIR
     Indication: INFLUENZA
     Dosage: 2 PUFFS, BID
     Route: 055
     Dates: start: 20120121, end: 20130127
  60. PROGRAF [Suspect]
     Active Substance: TACROLIMUS\TACROLIMUS ANHYDROUS
     Route: 048
     Dates: start: 20130104, end: 20130106
  61. PROGRAF [Suspect]
     Active Substance: TACROLIMUS\TACROLIMUS ANHYDROUS
     Route: 048
     Dates: start: 20130110, end: 20130110
  62. PROGRAF [Suspect]
     Active Substance: TACROLIMUS\TACROLIMUS ANHYDROUS
     Route: 048
     Dates: start: 20130111, end: 20130115
  63. NEXIUM [Concomitant]
     Active Substance: ESOMEPRAZOLE MAGNESIUM
     Indication: PROPHYLAXIS AGAINST GASTROINTESTINAL ULCER
  64. CEFEPIME [Concomitant]
     Active Substance: CEFEPIME\CEFEPIME HYDROCHLORIDE
     Indication: SEPSIS
     Route: 042
     Dates: start: 20130103, end: 20130103
  65. CEFEPIME [Concomitant]
     Active Substance: CEFEPIME\CEFEPIME HYDROCHLORIDE
     Route: 042
     Dates: start: 20130104, end: 20130109
  66. CHLOROTHIAZIDE. [Concomitant]
     Active Substance: CHLOROTHIAZIDE
     Indication: OEDEMA
     Route: 042
     Dates: start: 20130120, end: 20130121
  67. CIPROFLOXACIN. [Concomitant]
     Active Substance: CIPROFLOXACIN
     Indication: SEPSIS
     Route: 042
     Dates: start: 20130124, end: 20130126
  68. DAPTOMYCIN. [Concomitant]
     Active Substance: DAPTOMYCIN
     Indication: CHOLECYSTITIS ACUTE
     Dosage: 450 MG, SINGLE
     Route: 042
     Dates: start: 20130104, end: 20130104
  69. FENTANYL. [Concomitant]
     Active Substance: FENTANYL
     Indication: SEDATION
     Dosage: 50 MCG, PRN
     Route: 042
     Dates: start: 20130117, end: 20130118
  70. IMODIUM [Concomitant]
     Active Substance: LOPERAMIDE HYDROCHLORIDE
     Indication: DIARRHOEA
     Dosage: 2 MG, QD
     Route: 048
     Dates: start: 20130107, end: 20130108
  71. TOBRAMYCIN. [Concomitant]
     Active Substance: TOBRAMYCIN
     Dosage: 160-280 MG, Q48H
     Route: 042
     Dates: start: 20130123, end: 20130124
  72. VORICONAZOLE. [Concomitant]
     Active Substance: VORICONAZOLE
     Route: 048
     Dates: start: 20130112, end: 20130123
  73. ZOLPIDEM [Concomitant]
     Active Substance: ZOLPIDEM\ZOLPIDEM TARTRATE
     Indication: INSOMNIA
     Route: 048
     Dates: start: 20130117, end: 20130117
  74. ESOMEPRAZOLE [Concomitant]
     Active Substance: ESOMEPRAZOLE
     Indication: PROPHYLAXIS AGAINST GASTROINTESTINAL ULCER
     Route: 048
     Dates: start: 20130112, end: 20130127
  75. NEUPOGEN [Concomitant]
     Active Substance: FILGRASTIM
     Indication: NEUTROPENIA
     Dosage: 480 MCG, QD
     Route: 058
     Dates: start: 20121101, end: 20121105
  76. NEUPOGEN [Concomitant]
     Active Substance: FILGRASTIM
     Dosage: 480 MCG, SINGLE
     Route: 058
     Dates: start: 20130104, end: 20130104
  77. GLYCOPYRROLATE. [Concomitant]
     Active Substance: GLYCOPYRROLATE
     Indication: PRODUCT USED FOR UNKNOWN INDICATION
     Dosage: 0.8 MG, SINGLE
     Route: 042
     Dates: start: 20130117, end: 20130117
  78. MAGNESIUM SULFATE. [Concomitant]
     Active Substance: MAGNESIUM SULFATE
     Indication: HYPOMAGNESAEMIA
     Route: 042
     Dates: start: 20121017, end: 20121213
  79. NEOSTIGMINE [Concomitant]
     Active Substance: NEOSTIGMINE
     Indication: PRODUCT USED FOR UNKNOWN INDICATION
     Route: 042
     Dates: start: 20130119, end: 20130119
  80. ONDANSETRON [Concomitant]
     Active Substance: ONDANSETRON
     Indication: NAUSEA
     Route: 048
     Dates: start: 20130114, end: 20130127
  81. PROBENECID. [Concomitant]
     Active Substance: PROBENECID
     Indication: SEPSIS
     Route: 058
     Dates: start: 20130124, end: 20130125
  82. ROCURONIUM [Concomitant]
     Active Substance: ROCURONIUM BROMIDE
     Indication: SEDATION
     Dosage: 10-50 MCG, PRN
     Route: 042
     Dates: start: 20130119, end: 20130119
  83. ACETAMINOPHEN. [Concomitant]
     Active Substance: ACETAMINOPHEN
     Dosage: 325-975 MG, PRN
     Route: 048
     Dates: start: 20130119, end: 20130119
  84. PROGRAF [Suspect]
     Active Substance: TACROLIMUS\TACROLIMUS ANHYDROUS
     Route: 048
     Dates: start: 20121213, end: 20130103
  85. POTASSIUM CHLORIDE. [Concomitant]
     Active Substance: POTASSIUM CHLORIDE
     Indication: PRODUCT USED FOR UNKNOWN INDICATION
     Route: 042
     Dates: start: 20130104, end: 20130109
  86. TAMIFLU [Concomitant]
     Active Substance: OSELTAMIVIR PHOSPHATE
     Indication: INFLUENZA
     Route: 048
     Dates: start: 20130107, end: 20130118
  87. AZTREONAM. [Concomitant]
     Active Substance: AZTREONAM
     Indication: SEPSIS
     Route: 042
     Dates: start: 20130124, end: 20130127
  88. BUPIVACAINE W/EPINEPHRINE [Concomitant]
     Active Substance: BUPIVACAINE\EPINEPHRINE
     Indication: PRODUCT USED FOR UNKNOWN INDICATION
     Dosage: 10 ML, SINGLE
     Route: 058
     Dates: start: 20130119, end: 20130119
  89. CEFEPIME [Concomitant]
     Active Substance: CEFEPIME\CEFEPIME HYDROCHLORIDE
     Indication: FEBRILE NEUTROPENIA
     Route: 042
     Dates: start: 20121030, end: 20121105
  90. CEFEPIME [Concomitant]
     Active Substance: CEFEPIME\CEFEPIME HYDROCHLORIDE
     Indication: CHOLECYSTITIS ACUTE
     Route: 042
     Dates: start: 20121207, end: 20121212
  91. CEFEPIME [Concomitant]
     Active Substance: CEFEPIME\CEFEPIME HYDROCHLORIDE
     Route: 042
     Dates: start: 20130111, end: 20130114
  92. MICAFUNGIN [Concomitant]
     Active Substance: MICAFUNGIN
     Indication: ANTIFUNGAL PROPHYLAXIS
     Route: 042
     Dates: start: 20130104, end: 20130109
  93. NOREPINEPHRINE [Concomitant]
     Active Substance: NOREPINEPHRINE\NOREPINEPHRINE BITARTRATE
     Indication: SEPSIS
     Dosage: 0.1-0.3 MG, PRN
     Route: 042
     Dates: start: 20130123, end: 20130127

REACTIONS (1)
  - Subarachnoid haemorrhage [Fatal]

NARRATIVE: CASE EVENT DATE: 20130125
